FAERS Safety Report 10916008 (Version 13)
Quarter: 2019Q2

REPORT INFORMATION
  Report Type: Spontaneous
  Country: FI (occurrence: FI)
  Receive Date: 20150316
  Receipt Date: 20190614
  Transmission Date: 20190711
  Serious: Yes (Other)
  Sender: FDA-Public Use
  Company Number: FI-SA-2013SA123496

PATIENT
  Age: 36 Year
  Sex: Female

DRUGS (23)
  1. PARA-TABS [Concomitant]
     Active Substance: ACETAMINOPHEN
     Indication: PREMEDICATION
     Dosage: 500 MG,QD
     Route: 065
     Dates: start: 20131125, end: 20131128
  2. CHAMPIX [Concomitant]
     Active Substance: VARENICLINE TARTRATE
     Indication: TOBACCO USER
     Dosage: UNK
     Route: 065
     Dates: start: 201512
  3. AERIUS D [Concomitant]
     Indication: PREMEDICATION
     Dosage: 5 MG, QD
     Route: 065
     Dates: start: 20131125, end: 20131128
  4. LEMTRADA [Suspect]
     Active Substance: ALEMTUZUMAB
     Dosage: UNK
     Route: 041
     Dates: start: 20141202, end: 20141204
  5. COSOPT [Concomitant]
     Active Substance: DORZOLAMIDE HYDROCHLORIDE\TIMOLOL MALEATE
     Indication: GLAUCOMA
     Dosage: 1 DF,BID
     Route: 047
  6. TAFLOTAN [Concomitant]
     Active Substance: TAFLUPROST
     Indication: GLAUCOMA
     Dosage: 1 DF,BID
     Route: 047
  7. ACETAZOLAMIDE. [Concomitant]
     Active Substance: ACETAZOLAMIDE
     Indication: GLAUCOMA
     Route: 065
  8. CORTISONE ACETATE. [Suspect]
     Active Substance: CORTISONE ACETATE
     Dosage: UNK UNK,UNK
     Route: 065
  9. DESLORATADINE. [Concomitant]
     Active Substance: DESLORATADINE
     Route: 065
  10. FINGOLIMOD HYDROCHLORIDE [Concomitant]
     Active Substance: FINGOLIMOD HYDROCHLORIDE
     Route: 065
  11. BRIMONIDINE TARTRATE. [Concomitant]
     Active Substance: BRIMONIDINE TARTRATE
     Route: 065
  12. LEMTRADA [Suspect]
     Active Substance: ALEMTUZUMAB
     Indication: MULTIPLE SCLEROSIS
     Dosage: 12 MG,QD
     Route: 041
     Dates: start: 20131125
  13. ALPHAGAN P [Concomitant]
     Active Substance: BRIMONIDINE TARTRATE
     Dosage: 1 DF,BID
     Route: 047
  14. EBASTINE [Concomitant]
     Active Substance: EBASTINE
     Indication: PREMEDICATION
     Dosage: 5 MG,QD
     Route: 065
     Dates: start: 20131125, end: 20131128
  15. ACICLOVIR [Concomitant]
     Active Substance: ACYCLOVIR
     Indication: PREMEDICATION
     Dosage: 200 MG,BID
     Route: 065
     Dates: start: 20131125, end: 20131128
  16. SOMAC [Concomitant]
     Active Substance: PANTOPRAZOLE SODIUM
     Indication: PREMEDICATION
     Dosage: 40 MG,QD
     Route: 065
     Dates: start: 20131125, end: 20131128
  17. PREDNISOLONE ACETATE. [Concomitant]
     Active Substance: PREDNISOLONE ACETATE
     Dosage: 6 DF,QD
     Route: 047
  18. SULFAMETHOXAZOLE/TRIMETHOPRIM [Suspect]
     Active Substance: SULFAMETHOXAZOLE\TRIMETHOPRIM
     Indication: PREMEDICATION
     Dosage: 3 DF,QW
     Route: 065
  19. SOLU-MEDROL [Concomitant]
     Active Substance: METHYLPREDNISOLONE SODIUM SUCCINATE
     Indication: PREMEDICATION
     Dosage: 1000 MG,UNK
     Route: 065
     Dates: start: 20131125, end: 20131127
  20. RIVATRIL [Concomitant]
     Active Substance: CLONAZEPAM
     Indication: MULTIPLE SCLEROSIS
     Dosage: .5 MG,QD
     Route: 048
  21. ACICLOVIR [Concomitant]
     Active Substance: ACYCLOVIR
     Dosage: UNK
     Dates: start: 201512
  22. GILENYA [Concomitant]
     Active Substance: FINGOLIMOD HYDROCHLORIDE
     Dosage: UNK
     Route: 065
  23. METHYLPREDNISOLONE SODIUM SUCCINATE. [Concomitant]
     Active Substance: METHYLPREDNISOLONE SODIUM SUCCINATE
     Dosage: UNK
     Route: 065

REACTIONS (30)
  - Bradycardia [Unknown]
  - Muscle twitching [Unknown]
  - Vitreous haemorrhage [Not Recovered/Not Resolved]
  - Blindness unilateral [Recovered/Resolved]
  - Urinary tract infection [Recovered/Resolved]
  - C-reactive protein increased [Not Recovered/Not Resolved]
  - Restlessness [Unknown]
  - Feeling hot [Unknown]
  - C-reactive protein increased [Not Recovered/Not Resolved]
  - Eye disorder [Unknown]
  - Headache [Recovered/Resolved]
  - Platelet count decreased [Recovered/Resolved]
  - Endocrine ophthalmopathy [Not Recovered/Not Resolved]
  - Insomnia [Unknown]
  - Pneumonia pneumococcal [Recovering/Resolving]
  - Basedow^s disease [Unknown]
  - Pain [Unknown]
  - Oral herpes [Unknown]
  - Macular oedema [Unknown]
  - Product use issue [Unknown]
  - Uveitis [Unknown]
  - Hyperhidrosis [Unknown]
  - Diplopia [Unknown]
  - Rash generalised [Recovering/Resolving]
  - Myalgia [Recovered/Resolved]
  - Neurological symptom [Unknown]
  - Fatigue [Not Recovered/Not Resolved]
  - Condition aggravated [Unknown]
  - Muscular weakness [Not Recovered/Not Resolved]
  - Fungal infection [Unknown]

NARRATIVE: CASE EVENT DATE: 20131125
